FAERS Safety Report 4784289-5 (Version None)
Quarter: 2005Q3

REPORT INFORMATION
  Report Type: 
  Country: None (occurrence: None)
  Receive Date: 20050930
  Receipt Date: 20050916
  Transmission Date: 20060218
  Serious: Yes (Hospitalization)
  Sender: FDA-Public Use
  Company Number: HQWYE509716SEP05

PATIENT
  Sex: Female

DRUGS (1)
  1. ENBREL [Suspect]
     Indication: RHEUMATOID ARTHRITIS
     Route: 058

REACTIONS (6)
  - CONDITION AGGRAVATED [None]
  - INTERVERTEBRAL DISCITIS [None]
  - NONSPECIFIC REACTION [None]
  - PYELONEPHRITIS [None]
  - RHEUMATOID ARTHRITIS [None]
  - SEPSIS [None]
